FAERS Safety Report 15223559 (Version 1)
Quarter: 2018Q3

REPORT INFORMATION
  Report Type: Spontaneous
  Country: BR (occurrence: BR)
  Receive Date: 20180731
  Receipt Date: 20180731
  Transmission Date: 20181010
  Serious: Yes (Other)
  Sender: FDA-Public Use
  Company Number: BR-BIOMARINAP-BR-2018-119223

PATIENT
  Sex: Female
  Weight: 43 kg

DRUGS (4)
  1. NAGLAZYME [Suspect]
     Active Substance: GALSULFASE
     Indication: MUCOPOLYSACCHARIDOSIS VI
     Dosage: UNK UNK, QW
     Route: 042
     Dates: start: 20070226
  2. AZOPT [Concomitant]
     Active Substance: BRINZOLAMIDE
     Indication: GLAUCOMA
     Dosage: 1 GTT, BID
  3. TRILEPTAL [Concomitant]
     Active Substance: OXCARBAZEPINE
     Indication: SEIZURE
     Dosage: 12 ML, BID
  4. CLENIL                             /00212602/ [Concomitant]
     Active Substance: BECLOMETHASONE DIPROPIONATE
     Indication: LUNG DISORDER
     Dosage: UNK, BID
     Route: 050

REACTIONS (3)
  - Dyspnoea [Unknown]
  - Obstructive airways disorder [Unknown]
  - Bronchospasm [Not Recovered/Not Resolved]
